FAERS Safety Report 6399195-2 (Version None)
Quarter: 2009Q4

REPORT INFORMATION
  Report Type: 
  Country: None (occurrence: None)
  Receive Date: 20091008
  Receipt Date: 20090923
  Transmission Date: 20100525
  Serious: Yes (Hospitalization)
  Sender: FDA-Public Use
  Company Number: 2009002916

PATIENT
  Age: 44 Year
  Sex: Female
  Weight: 43 kg

DRUGS (7)
  1. ERLTOINIB (ERLOTINIB) (TABLET) (ERLOTINIB) [Suspect]
     Indication: NON-SMALL CELL LUNG CANCER
     Dosage: 150 MG, QD, ORAL
     Route: 048
     Dates: start: 20090803
  2. ARQ 197/PLACBEO [Suspect]
     Indication: NON-SMALL CELL LUNG CANCER
     Dosage: 720 MG, BID, ORAL
     Route: 048
     Dates: start: 20090803
  3. TRAMAL RETARD (TRAMADOL) [Concomitant]
  4. BISOCARD (BISOPROLOL) [Concomitant]
  5. DUOMOX (AMOXICILLIN) [Concomitant]
  6. CYCLONAMINA (ETAMSILATE) [Concomitant]
  7. EXACYL (TRANEXAMIC ACID) [Concomitant]

REACTIONS (4)
  - ANAEMIA [None]
  - ASTHENIA [None]
  - DYSPNOEA [None]
  - PLEURAL HAEMORRHAGE [None]
